FAERS Safety Report 12146090 (Version 1)
Quarter: 2016Q1

REPORT INFORMATION
  Report Type: Spontaneous
  Country: US (occurrence: US)
  Receive Date: 20160304
  Receipt Date: 20160304
  Transmission Date: 20160526
  Serious: No
  Sender: FDA-Public Use
  Company Number: US-PERRIGO-15US007432

PATIENT
  Age: 57 Year
  Sex: Female
  Weight: 63.49 kg

DRUGS (1)
  1. NAPROXEN SODIUM 220 MG 368 [Suspect]
     Active Substance: NAPROXEN SODIUM
     Indication: BACK PAIN
     Dosage: 440 MG FIRST DOSE, 220 MG 12 HOURS LATER, QD
     Route: 048
     Dates: start: 20150713, end: 20150714

REACTIONS (1)
  - Drug ineffective [Unknown]

NARRATIVE: CASE EVENT DATE: 20150713
